FAERS Safety Report 8165388-7 (Version None)
Quarter: 2012Q1

REPORT INFORMATION
  Report Type: 
  Country: None (occurrence: None)
  Receive Date: 20120227
  Receipt Date: 20120223
  Transmission Date: 20120608
  Serious: No
  Sender: FDA-Public Use
  Company Number: US-PFIZER INC-2011159555

PATIENT
  Sex: Male

DRUGS (2)
  1. NAPROXEN (ALEVE) [Concomitant]
     Dosage: UNK
  2. FLECTOR [Suspect]
     Dosage: 1.3 %, UNK
     Route: 061

REACTIONS (1)
  - BLISTER [None]
